FAERS Safety Report 6295343-3 (Version None)
Quarter: 2009Q3

REPORT INFORMATION
  Report Type: 
  Country: None (occurrence: None)
  Receive Date: 20090730
  Receipt Date: 20090722
  Transmission Date: 20100115
  Serious: Yes (Hospitalization, Other)
  Sender: FDA-Public Use
  Company Number: ADR11142009(MHRA ADR NO.: ADR20460869-001)

PATIENT
  Sex: Female

DRUGS (2)
  1. SERTRALINE [Suspect]
     Dosage: 100MG ONCE/DAY, TRANSPLACENTAL
     Route: 064
     Dates: start: 20090706
  2. CO-DYDRAMOL (DIHYDROCODEINE TARTRATE,PARACETAMOL) [Concomitant]

REACTIONS (4)
  - CRYING [None]
  - DYSKINESIA [None]
  - IRRITABILITY [None]
  - WITHDRAWAL SYNDROME [None]
